FAERS Safety Report 18669415 (Version 2)
Quarter: 2020Q4

REPORT INFORMATION
  Report Type: Spontaneous
  Country: US (occurrence: US)
  Receive Date: 20201228
  Receipt Date: 20201230
  Transmission Date: 20210114
  Serious: Yes (Hospitalization)
  Sender: FDA-Public Use
  Company Number: US-CATALYST PHARMACEUTICALS, INC-2020CAT00624

PATIENT
  Age: 57 Year
  Sex: Male

DRUGS (1)
  1. FIRDAPSE [Suspect]
     Active Substance: AMIFAMPRIDINE PHOSPHATE
     Indication: MYASTHENIC SYNDROME
     Dosage: 10 MG, 3X/DAY
     Route: 048
     Dates: start: 202012, end: 202012

REACTIONS (4)
  - Circulatory collapse [Recovered/Resolved]
  - Unresponsive to stimuli [Recovered/Resolved]
  - Product dose omission issue [Not Recovered/Not Resolved]
  - Respiration abnormal [Unknown]

NARRATIVE: CASE EVENT DATE: 202012
